FAERS Safety Report 9732896 (Version 2)
Quarter: 2014Q1

REPORT INFORMATION
  Report Type: Spontaneous
  Country: US (occurrence: US)
  Receive Date: 20131205
  Receipt Date: 20140121
  Transmission Date: 20141002
  Serious: Yes (Other)
  Sender: FDA-Public Use
  Company Number: US-PFIZER INC-2013343411

PATIENT
  Age: 56 Year
  Sex: Female

DRUGS (14)
  1. REVATIO [Suspect]
     Indication: PULMONARY ARTERIAL HYPERTENSION
     Dosage: 20 MG, 3X/DAY
     Route: 048
     Dates: start: 200802, end: 201104
  2. TRACLEER [Concomitant]
     Indication: PULMONARY ARTERIAL HYPERTENSION
     Dosage: 125 MG, 2X/DAY
     Route: 048
  3. LEVOXYL [Concomitant]
     Dosage: 120 UG, DAILY
  4. AMLODIPINE [Concomitant]
     Dosage: 5 MG, 2X/DAY
  5. COUMADIN [Concomitant]
     Dosage: 2.5 MG, DAILY
  6. LEXAPRO [Concomitant]
     Dosage: 30 MG, DAILY
  7. FUROSEMIDE [Concomitant]
     Dosage: 60 MG EVERY MORNING AND 20 MG  IN THE EVENING
  8. ALPRAZOLAM [Concomitant]
     Dosage: 0.5 MG, UNK
  9. IMITREX [Concomitant]
     Dosage: AS NEEDED
     Route: 045
  10. LORCET [Concomitant]
     Dosage: 7.5/650 AS NEEDED
  11. SPIRONOLACTONE [Concomitant]
     Dosage: 25 MG, 2X/DAY
  12. NEURONTIN [Concomitant]
     Dosage: 600MG TWICE A DAY AND 300MG AT BEDTIME
  13. BOSENTAN [Concomitant]
     Dosage: 125 MG, 2X/DAY
  14. WARFARIN [Concomitant]
     Dosage: UNK

REACTIONS (2)
  - Deafness unilateral [Recovering/Resolving]
  - Vertigo [Recovered/Resolved]
